FAERS Safety Report 9246069 (Version 2)
Quarter: 2013Q2

REPORT INFORMATION
  Report Type: Spontaneous
  Country: JP (occurrence: JP)
  Receive Date: 20130422
  Receipt Date: 20130520
  Transmission Date: 20140414
  Serious: Yes (Death, Hospitalization)
  Sender: FDA-Public Use
  Company Number: PHHY2013JP038296

PATIENT
  Age: 49 Year
  Sex: Male
  Weight: 70 kg

DRUGS (6)
  1. IMATINIB [Suspect]
     Indication: GASTROINTESTINAL STROMAL TUMOUR
     Dosage: UNK UKN, UNK
     Route: 048
     Dates: start: 200804, end: 200902
  2. IMATINIB [Suspect]
     Dosage: UNK UKN, UNK
     Dates: start: 201106
  3. SUNITINIB [Suspect]
     Indication: GASTROINTESTINAL STROMAL TUMOUR
     Dosage: 50 MG, UNK
     Route: 048
     Dates: start: 200902
  4. SUNITINIB [Suspect]
     Dosage: 37.5 MG, UNK
     Route: 048
     Dates: end: 201011
  5. SUNITINIB [Suspect]
     Dosage: 50 MG, UNK
     Route: 048
     Dates: start: 201011
  6. SUNITINIB [Suspect]
     Dosage: 37.5 MG, UNK
     Route: 048
     Dates: end: 201106

REACTIONS (10)
  - Gastrointestinal stromal tumour [Fatal]
  - Malignant neoplasm progression [Fatal]
  - Abdominal distension [Fatal]
  - Metastases to peritoneum [Unknown]
  - Metastases to liver [Unknown]
  - Oedema peripheral [Unknown]
  - Neutropenia [Unknown]
  - Blood bilirubin increased [Unknown]
  - Drug resistance [Unknown]
  - Therapeutic response decreased [Unknown]
